FAERS Safety Report 5816177-7 (Version None)
Quarter: 2008Q3

REPORT INFORMATION
  Report Type: 
  Country: None (occurrence: None)
  Receive Date: 20080721
  Receipt Date: 20080715
  Transmission Date: 20090109
  Serious: Yes (Hospitalization)
  Sender: FDA-Public Use
  Company Number: A0737731A

PATIENT
  Sex: Female

DRUGS (6)
  1. ADVAIR DISKUS 100/50 [Suspect]
     Indication: CHRONIC OBSTRUCTIVE PULMONARY DISEASE
     Dosage: 1PUFF PER DAY
     Route: 055
     Dates: start: 20020101
  2. MULTI-VITAMIN [Concomitant]
  3. CALCIUM [Concomitant]
  4. VITAMIN D [Concomitant]
  5. ASCORBIC ACID [Concomitant]
  6. PROTONIX [Concomitant]

REACTIONS (6)
  - DRUG DOSE OMISSION [None]
  - DRUG INEFFECTIVE [None]
  - INFLUENZA [None]
  - INTENTIONAL DRUG MISUSE [None]
  - RESPIRATORY DISORDER [None]
  - TREATMENT NONCOMPLIANCE [None]
